FAERS Safety Report 10493170 (Version 1)
Quarter: 2014Q4

REPORT INFORMATION
  Report Type: Spontaneous
  Country: US (occurrence: US)
  Receive Date: 20141002
  Receipt Date: 20141002
  Transmission Date: 20150528
  Serious: No
  Sender: FDA-Public Use
  Company Number: US-GLAXOSMITHKLINE-A1080398A

PATIENT
  Age: 77 Year
  Sex: Female

DRUGS (5)
  1. REMERON [Concomitant]
     Active Substance: MIRTAZAPINE
  2. WELLBUTRIN [Concomitant]
     Active Substance: BUPROPION HYDROCHLORIDE
  3. ADVAIR HFA [Suspect]
     Active Substance: FLUTICASONE PROPIONATE\SALMETEROL XINAFOATE
     Indication: CHRONIC OBSTRUCTIVE PULMONARY DISEASE
     Dosage: 1PUFF PER DAY
     Route: 055
     Dates: start: 2010
  4. ESTRACE [Concomitant]
     Active Substance: ESTRADIOL
  5. THYROID [Concomitant]
     Active Substance: LEVOTHYROXINE\LIOTHYRONINE

REACTIONS (2)
  - Drug ineffective [Unknown]
  - Product quality issue [Unknown]

NARRATIVE: CASE EVENT DATE: 20140705
